FAERS Safety Report 8814575 (Version 1)
Quarter: 2012Q4

REPORT INFORMATION
  Report Type: 
  Country: US (occurrence: US)
  Receive Date: 20120928
  Receipt Date: 20120928
  Transmission Date: 20130627
  Serious: Yes (Disabling, Other)
  Sender: FDA-Public Use
  Company Number: US-BAYER-2012-100521

PATIENT
  Sex: Male

DRUGS (1)
  1. MAGNEVIST [Suspect]
     Indication: NUCLEAR MAGNETIC RESONANCE IMAGING BRAIN
     Dosage: UNK
     Dates: start: 20101201, end: 20101201

REACTIONS (4)
  - Pain [None]
  - Abasia [None]
  - Wheelchair user [None]
  - Mobility decreased [None]
